FAERS Safety Report 6056895-1 (Version None)
Quarter: 2009Q1

REPORT INFORMATION
  Report Type: 
  Country: None (occurrence: None)
  Receive Date: 20090129
  Receipt Date: 20090127
  Transmission Date: 20090719
  Serious: Yes (Hospitalization)
  Sender: FDA-Public Use
  Company Number: B0555081A

PATIENT
  Age: 44 Year
  Sex: Female

DRUGS (9)
  1. EPIVIR [Suspect]
     Indication: ANTIVIRAL PROPHYLAXIS
     Dosage: 300MG SINGLE DOSE
     Route: 048
     Dates: start: 20080516, end: 20080516
  2. EMTRIVA [Suspect]
     Indication: ANTIVIRAL PROPHYLAXIS
     Dosage: 200MG SINGLE DOSE
     Route: 048
     Dates: start: 20080516, end: 20080516
  3. KALETRA [Suspect]
     Indication: ANTIVIRAL PROPHYLAXIS
     Dosage: 3TAB SINGLE DOSE
     Route: 048
     Dates: start: 20080516, end: 20080516
  4. RETROVIR [Concomitant]
     Indication: ANTIVIRAL PROPHYLAXIS
     Dosage: 300MG SINGLE DOSE
     Route: 048
     Dates: start: 20080516, end: 20080516
  5. NORVIR [Concomitant]
     Indication: ANTIVIRAL PROPHYLAXIS
     Dosage: 400MG PER DAY
     Route: 048
     Dates: start: 20080516, end: 20080516
  6. REYATAZ [Concomitant]
     Indication: ANTIVIRAL PROPHYLAXIS
     Dosage: 150MG SINGLE DOSE
     Route: 048
     Dates: start: 20080516, end: 20080516
  7. VIDEX [Concomitant]
     Indication: ANTIVIRAL PROPHYLAXIS
     Dosage: 400MG SINGLE DOSE
     Route: 048
     Dates: start: 20080516, end: 20080516
  8. VIREAD [Concomitant]
     Indication: ANTIVIRAL PROPHYLAXIS
     Dosage: 245MG PER DAY
     Route: 048
     Dates: start: 20080516, end: 20080516
  9. ZERIT [Concomitant]
     Indication: ANTIVIRAL PROPHYLAXIS
     Dosage: 40MG SINGLE DOSE
     Route: 048
     Dates: start: 20080516, end: 20080516

REACTIONS (4)
  - DIARRHOEA [None]
  - DRUG ADMINISTRATION ERROR [None]
  - NAUSEA [None]
  - VERTIGO [None]
